FAERS Safety Report 8165457-1 (Version None)
Quarter: 2012Q1

REPORT INFORMATION
  Report Type: 
  Country: None (occurrence: None)
  Receive Date: 20120227
  Receipt Date: 20120214
  Transmission Date: 20120608
  Serious: Yes (Other)
  Sender: FDA-Public Use
  Company Number: US-SANOFI-AVENTIS-2012SA009998

PATIENT
  Sex: Female

DRUGS (4)
  1. APIDRA [Suspect]
     Indication: DIABETES MELLITUS
     Dosage: PER SLIDING SCALE AT MEAL TIMES
     Route: 058
     Dates: start: 20110101
  2. SOLOSTAR [Suspect]
     Indication: DIABETES MELLITUS
     Dates: start: 20110101
  3. LANTUS [Suspect]
     Indication: DIABETES MELLITUS
     Dosage: DOSE:50 UNIT(S)
     Route: 058
     Dates: start: 20110601
  4. SOLOSTAR [Suspect]
     Dates: start: 20110101

REACTIONS (1)
  - CEREBROVASCULAR ACCIDENT [None]
